FAERS Safety Report 21120937 (Version 1)
Quarter: 2022Q3

REPORT INFORMATION
  Report Type: Spontaneous
  Country: PT (occurrence: PT)
  Receive Date: 20220722
  Receipt Date: 20220722
  Transmission Date: 20221027
  Serious: Yes (Other)
  Sender: FDA-Public Use
  Company Number: PT-BAXTER-2022BAX015177

PATIENT
  Age: 84 Year
  Sex: Female

DRUGS (3)
  1. SEVOFLURANE [Suspect]
     Active Substance: SEVOFLURANE
     Indication: Maintenance of anaesthesia
     Dosage: 0.5 PERCENT
     Route: 065
  2. FENTANYL [Concomitant]
     Active Substance: FENTANYL
     Indication: General anaesthesia
     Dosage: 0.05 MG OF FENTANYL (0.07 MICROG/KG)
     Route: 065
  3. PROPOFOL [Concomitant]
     Active Substance: PROPOFOL
     Indication: General anaesthesia
     Dosage: 70 MG, (1 MG/KG) FOR THE INDUCTION
     Route: 065

REACTIONS (2)
  - Atrioventricular block [Unknown]
  - Heart rate decreased [Unknown]
